FAERS Safety Report 5014973-X (Version None)
Quarter: 2006Q2

REPORT INFORMATION
  Report Type: 
  Country: None (occurrence: None)
  Receive Date: 20060426
  Receipt Date: 20060123
  Transmission Date: 20061013
  Serious: No
  Sender: FDA-Public Use
  Company Number: US164363

PATIENT
  Sex: Female

DRUGS (1)
  1. SENSIPAR [Suspect]

REACTIONS (1)
  - HOT FLUSH [None]
